FAERS Safety Report 6555803-4 (Version None)
Quarter: 2010Q1

REPORT INFORMATION
  Report Type: 
  Country: None (occurrence: None)
  Receive Date: 20100128
  Receipt Date: 20100114
  Transmission Date: 20100710
  Serious: Yes (Hospitalization)
  Sender: FDA-Public Use
  Company Number: US-BAYER-201011593NA

PATIENT
  Sex: Female
  Weight: 74 kg

DRUGS (1)
  1. MIRENA [Suspect]
     Indication: CONTRACEPTION
     Dosage: CONTINUOUS
     Route: 015
     Dates: start: 20090401, end: 20100113

REACTIONS (3)
  - AMENORRHOEA [None]
  - BLOOD PRESSURE FLUCTUATION [None]
  - VAGINAL HAEMORRHAGE [None]
